FAERS Safety Report 9280858 (Version 1)
Quarter: 2013Q2

REPORT INFORMATION
  Report Type: Spontaneous
  Country: US (occurrence: US)
  Receive Date: 20130509
  Receipt Date: 20130509
  Transmission Date: 20140414
  Serious: No
  Sender: FDA-Public Use
  Company Number: US-AMGEN-USASP2013014560

PATIENT
  Age: 50 Year
  Sex: Male
  Weight: 84.5 kg

DRUGS (11)
  1. SENSIPAR [Suspect]
     Indication: HYPERPARATHYROIDISM SECONDARY
     Dosage: 60 MG, QOD
     Route: 048
     Dates: start: 201108
  2. RENVELA [Suspect]
     Dosage: 3200 MG, TID
     Route: 048
  3. METOPROLOL [Concomitant]
  4. LISINOPRIL [Concomitant]
     Indication: HYPERTENSION
     Dosage: 15 MG, QD
     Route: 048
  5. LOPRESSOR [Concomitant]
     Dosage: 12.5 MG, BID
     Route: 048
  6. GABAPENTIN [Concomitant]
     Dosage: 100 MG, BID
     Route: 048
  7. VIAGRA [Concomitant]
     Dosage: 100 MG, UNK
  8. PROGRAF [Concomitant]
     Dosage: 4 MG, BID
     Route: 048
  9. PREDNISONE [Concomitant]
     Dosage: 5 MG, UNK
     Route: 048
  10. CELEXA                             /00582602/ [Concomitant]
     Dosage: 10 MG, UNK
     Route: 048
  11. FISH OIL [Concomitant]
     Dosage: 2000 MG, QD

REACTIONS (1)
  - Diarrhoea [Not Recovered/Not Resolved]
